FAERS Safety Report 18481349 (Version 1)
Quarter: 2020Q4

REPORT INFORMATION
  Report Type: Spontaneous
  Country: US (occurrence: US)
  Receive Date: 20201109
  Receipt Date: 20201109
  Transmission Date: 20210114
  Serious: Yes (Other)
  Sender: FDA-Public Use
  Company Number: US-PURDUE-USA-2020-0173929

PATIENT
  Sex: Male

DRUGS (12)
  1. OXYCODONE HCL TABLETS (RHODES 91-490) [Suspect]
     Active Substance: OXYCODONE HYDROCHLORIDE
     Indication: SARCOIDOSIS
     Dosage: UNK
     Route: 048
  2. PALLADONE [Suspect]
     Active Substance: HYDROMORPHONE HYDROCHLORIDE
     Indication: SARCOIDOSIS
     Dosage: UNK
     Route: 065
  3. OXYCODONE HYDROCHLORIDE (SIMILAR TO NDA 22-272) [Suspect]
     Active Substance: OXYCODONE HYDROCHLORIDE
     Indication: PRODUCT USED FOR UNKNOWN INDICATION
     Dosage: UNK
     Route: 048
  4. OXYFAST [Suspect]
     Active Substance: OXYCODONE
     Indication: SARCOIDOSIS
     Dosage: UNK
     Route: 065
  5. MSIR [Suspect]
     Active Substance: MORPHINE SULFATE
     Indication: SARCOIDOSIS
     Dosage: UNK
     Route: 065
  6. HYDROCODONE BITARTRATE (SIMILAR TO NDA 206627) [Suspect]
     Active Substance: HYDROCODONE BITARTRATE
     Indication: PRODUCT USED FOR UNKNOWN INDICATION
     Dosage: UNK
     Route: 048
  7. HYDROCODONE BITARTRATE AND ACETAMINOPHEN [Suspect]
     Active Substance: ACETAMINOPHEN\HYDROCODONE BITARTRATE
     Indication: SARCOIDOSIS
     Dosage: UNK
     Route: 048
  8. DHC PLUS [Suspect]
     Active Substance: ACETAMINOPHEN\CAFFEINE\DIHYDROCODEINE BITARTRATE
     Indication: SARCOIDOSIS
     Dosage: UNK
     Route: 065
  9. TRAMADOL. [Suspect]
     Active Substance: TRAMADOL
     Indication: SARCOIDOSIS
     Dosage: UNK
     Route: 065
  10. HYDROMORPHONE TABLET (RHODES) [Suspect]
     Active Substance: HYDROMORPHONE
     Indication: SARCOIDOSIS
     Dosage: UNK
     Route: 048
  11. HYSINGLA ER [Suspect]
     Active Substance: HYDROCODONE BITARTRATE
     Indication: SARCOIDOSIS
     Dosage: UNK
     Route: 048
  12. MORPHINE [Suspect]
     Active Substance: MORPHINE
     Indication: PRODUCT USED FOR UNKNOWN INDICATION
     Dosage: UNK
     Route: 062

REACTIONS (12)
  - Depression [Unknown]
  - Movement disorder [Unknown]
  - Overdose [Unknown]
  - Confusional state [Unknown]
  - Insomnia [Unknown]
  - Anxiety [Unknown]
  - Nausea [Unknown]
  - Emotional distress [Unknown]
  - Drug dependence [Unknown]
  - Disability [Unknown]
  - Tremor [Unknown]
  - Somnolence [Unknown]
